FAERS Safety Report 4300587-3 (Version None)
Quarter: 2004Q1

REPORT INFORMATION
  Report Type: 
  Country: None (occurrence: None)
  Receive Date: 20040220
  Receipt Date: 20040210
  Transmission Date: 20041129
  Serious: Yes (Other)
  Sender: FDA-Public Use
  Company Number: US-ROCHE-358581

PATIENT
  Age: 38 Year
  Sex: Female
  Weight: 55.2 kg

DRUGS (8)
  1. DACLIZUMAB [Suspect]
     Indication: PROPHYLAXIS AGAINST TRANSPLANT REJECTION
     Dosage: ACCORDING TO PROTOCOL: IMMEDIATELY PRE-TRANSPLANT, DACLIZUMAB 1MG/KG IV OVER 15 MINUTES. FOUR SUBSE+
     Route: 042
     Dates: start: 20030813
  2. GANCICLOVIR [Suspect]
     Route: 048
     Dates: start: 20030813, end: 20030826
  3. GANCICLOVIR [Suspect]
     Route: 048
     Dates: start: 20030908, end: 20030911
  4. NKT-01 [Suspect]
     Indication: IMMUNOSUPPRESSION
     Route: 042
     Dates: start: 20030813, end: 20030821
  5. NKT-01 [Suspect]
     Route: 042
     Dates: start: 20030824, end: 20030825
  6. PROGRAF [Suspect]
     Indication: PROPHYLAXIS AGAINST TRANSPLANT REJECTION
     Route: 048
     Dates: start: 20030813
  7. SIROLIMUS [Suspect]
     Indication: PROPHYLAXIS AGAINST TRANSPLANT REJECTION
     Route: 048
     Dates: start: 20030813
  8. BACTRIM [Suspect]
     Route: 048
     Dates: start: 20030813, end: 20030825

REACTIONS (3)
  - LEUKOPENIA [None]
  - NEUTROPENIA [None]
  - THROMBOCYTOPENIA [None]
